FAERS Safety Report 5937267-4 (Version None)
Quarter: 2008Q4

REPORT INFORMATION
  Report Type: 
  Country: None (occurrence: None)
  Receive Date: 20081031
  Receipt Date: 20081019
  Transmission Date: 20090506
  Serious: Yes (Hospitalization)
  Sender: FDA-Public Use
  Company Number: NZ-JNJFOC-20081002038

PATIENT
  Sex: Male
  Weight: 72 kg

DRUGS (2)
  1. TRAMADOL HCL [Suspect]
     Indication: PAIN
  2. METHAMPHETAMINE HYDROCHLORIDE [Concomitant]

REACTIONS (2)
  - OVERDOSE [None]
  - SOMNOLENCE [None]
